FAERS Safety Report 5621321-0 (Version None)
Quarter: 2008Q1

REPORT INFORMATION
  Report Type: 
  Country: None (occurrence: None)
  Receive Date: 20080211
  Receipt Date: 20080131
  Transmission Date: 20080703
  Serious: Yes (Other)
  Sender: FDA-Public Use
  Company Number: JP-BAYER-200810127BYL

PATIENT
  Age: 82 Year
  Sex: Female
  Weight: 41 kg

DRUGS (7)
  1. AVELOX [Suspect]
     Indication: PNEUMONIA
     Dosage: TOTAL DAILY DOSE: 400 MG  UNIT DOSE: 400 MG
     Route: 048
     Dates: start: 20071225, end: 20071227
  2. BASEN OD [Suspect]
     Indication: HYPERGLYCAEMIA
     Dosage: TOTAL DAILY DOSE: 0.9 MG  UNIT DOSE: 0.3 MG
     Route: 048
     Dates: start: 20071219, end: 20071226
  3. AMARYL [Suspect]
     Indication: DIABETES MELLITUS
     Dosage: UNIT DOSE: 1 MG
     Route: 048
     Dates: start: 20071219, end: 20071226
  4. LASIX [Concomitant]
     Dosage: TOTAL DAILY DOSE: 10 MG  UNIT DOSE: 20 MG
     Route: 048
     Dates: start: 20071219, end: 20071226
  5. ASPIRIN [Concomitant]
     Dosage: TOTAL DAILY DOSE: 100 MG  UNIT DOSE: 100 MG
     Route: 048
     Dates: start: 20071219, end: 20071226
  6. MEVALOTIN [Concomitant]
     Indication: HYPERLIPIDAEMIA
     Dosage: TOTAL DAILY DOSE: 5 MG  UNIT DOSE: 10 MG
     Route: 048
     Dates: start: 20071219, end: 20071226
  7. KAMAG G [Concomitant]
     Indication: CONSTIPATION
     Dosage: TOTAL DAILY DOSE: 1.0 MG  UNIT DOSE: 0.5 MG
     Route: 048
     Dates: start: 20071219, end: 20071226

REACTIONS (1)
  - HYPOGLYCAEMIA [None]
